FAERS Safety Report 21254222 (Version 2)
Quarter: 2022Q4

REPORT INFORMATION
  Report Type: Spontaneous
  Country: RU (occurrence: RU)
  Receive Date: 20220825
  Receipt Date: 20221007
  Transmission Date: 20230113
  Serious: Yes (Other)
  Sender: FDA-Public Use
  Company Number: RU-TAKEDA-2022TUS058684

PATIENT
  Age: 31 Year
  Sex: Female
  Weight: 59 kg

DRUGS (1)
  1. ENTYVIO [Suspect]
     Active Substance: VEDOLIZUMAB
     Indication: Crohn^s disease
     Dosage: 300 MILLIGRAM, MONTHLY
     Route: 042
     Dates: start: 20200326, end: 20211228

REACTIONS (1)
  - Loss of therapeutic response [Not Recovered/Not Resolved]

NARRATIVE: CASE EVENT DATE: 20211202
